FAERS Safety Report 19154813 (Version 1)
Quarter: 2021Q2

REPORT INFORMATION
  Report Type: Spontaneous
  Country: BR (occurrence: BR)
  Receive Date: 20210419
  Receipt Date: 20210419
  Transmission Date: 20210717
  Serious: Yes (Other)
  Sender: FDA-Public Use
  Company Number: BR-SERVIER-S21003261

PATIENT

DRUGS (2)
  1. ONCASPAR [Suspect]
     Active Substance: PEGASPARGASE
     Indication: ACUTE LYMPHOCYTIC LEUKAEMIA
     Dosage: UNK
     Route: 065
  2. TN UNSPECIFIED [Concomitant]
     Indication: B-CELL TYPE ACUTE LEUKAEMIA
     Dosage: UNK
     Route: 065

REACTIONS (9)
  - Upper respiratory fungal infection [Recovered/Resolved]
  - Bacteraemia [Unknown]
  - Device related infection [Unknown]
  - Febrile neutropenia [Unknown]
  - Hepatic infection fungal [Recovered/Resolved]
  - Splenic infection fungal [Unknown]
  - Enzyme activity decreased [Unknown]
  - Disease progression [Unknown]
  - Hypersensitivity [Unknown]

NARRATIVE: CASE EVENT DATE: 2020
